FAERS Safety Report 8604435-2 (Version None)
Quarter: 2012Q3

REPORT INFORMATION
  Report Type: 
  Country: None (occurrence: None)
  Receive Date: 20120820
  Receipt Date: 20120809
  Transmission Date: 20120928
  Serious: Yes (Other)
  Sender: FDA-Public Use
  Company Number: US-US-EMD SERONO, INC.-7076517

PATIENT
  Sex: Female
  Weight: 81 kg

DRUGS (2)
  1. REBIF [Suspect]
     Indication: MULTIPLE SCLEROSIS
     Route: 058
     Dates: start: 20031017
  2. UNSPECIFIED PAIN MEDICATION [Concomitant]
     Indication: HEADACHE
     Dates: start: 19910101, end: 20030101

REACTIONS (5)
  - CARDIAC FAILURE CONGESTIVE [None]
  - CORONARY ARTERY STENOSIS [None]
  - ANXIETY [None]
  - HEPATIC ENZYME INCREASED [None]
  - WEIGHT INCREASED [None]
